FAERS Safety Report 8817991 (Version 2)
Quarter: 2013Q1

REPORT INFORMATION
  Report Type: Spontaneous
  Country: US (occurrence: US)
  Receive Date: 20121001
  Receipt Date: 20130129
  Transmission Date: 20140127
  Serious: Yes (Other)
  Sender: FDA-Public Use
  Company Number: US-ROCHE-1103715

PATIENT
  Sex: Female

DRUGS (6)
  1. HERCEPTIN [Suspect]
     Indication: BREAST CANCER FEMALE
     Route: 065
     Dates: start: 2004
  2. HERCEPTIN [Suspect]
     Route: 065
     Dates: start: 20050518
  3. HERCEPTIN [Suspect]
     Route: 065
     Dates: start: 20050629
  4. HERCEPTIN [Suspect]
     Route: 065
     Dates: start: 200806
  5. AROMASIN [Concomitant]
     Route: 065
     Dates: start: 2004
  6. NAVELBINE [Concomitant]
     Route: 065
     Dates: start: 2005

REACTIONS (1)
  - Disease progression [Unknown]
